FAERS Safety Report 5909339-1 (Version None)
Quarter: 2008Q4

REPORT INFORMATION
  Report Type: 
  Country: None (occurrence: None)
  Receive Date: 20081006
  Receipt Date: 20080929
  Transmission Date: 20090506
  Serious: Yes (Other)
  Sender: FDA-Public Use
  Company Number: GB-ASTRAZENECA-2008GB01856

PATIENT
  Sex: Female

DRUGS (4)
  1. ARIMIDEX [Suspect]
     Route: 048
  2. GLEEVEC [Interacting]
  3. GLEEVEC [Interacting]
     Dosage: DOSE REDUCED
  4. GLEEVEC [Interacting]
     Dosage: DOSE INCREASED

REACTIONS (4)
  - DRUG INTERACTION [None]
  - MYALGIA [None]
  - OEDEMA [None]
  - PANCYTOPENIA [None]
